FAERS Safety Report 9448326 (Version 3)
Quarter: 2013Q3

REPORT INFORMATION
  Report Type: Report from Study
  Country: US (occurrence: US)
  Receive Date: 20130808
  Receipt Date: 20130906
  Transmission Date: 20140515
  Serious: Yes (Hospitalization)
  Sender: FDA-Public Use
  Company Number: US-ASTELLAS-2013US008048

PATIENT
  Age: 14 Year
  Sex: Female
  Weight: 128 kg

DRUGS (1)
  1. TACROLIMUS OINTMENT [Suspect]
     Indication: DERMATITIS ATOPIC
     Dosage: 0.01 %, PRN SPARINGLY
     Route: 061
     Dates: start: 20080115

REACTIONS (2)
  - Off label use [Unknown]
  - Paraganglion neoplasm [Recovered/Resolved]
